FAERS Safety Report 9493592 (Version 2)
Quarter: 2013Q3

REPORT INFORMATION
  Report Type: Spontaneous
  Country: US (occurrence: US)
  Receive Date: 20130902
  Receipt Date: 20130926
  Transmission Date: 20140515
  Serious: Yes (Other)
  Sender: FDA-Public Use
  Company Number: US-PFIZER INC-2013252351

PATIENT
  Age: 89 Year
  Sex: Male
  Weight: 88.44 kg

DRUGS (1)
  1. LYRICA [Suspect]
     Indication: NEUROPATHY PERIPHERAL
     Dosage: UNK, 2X/DAY
     Route: 048

REACTIONS (3)
  - Abasia [Unknown]
  - Pain in extremity [Unknown]
  - Insomnia [Unknown]
